FAERS Safety Report 6391515-8 (Version None)
Quarter: 2009Q4

REPORT INFORMATION
  Report Type: 
  Country: None (occurrence: None)
  Receive Date: 20091007
  Receipt Date: 20090923
  Transmission Date: 20100525
  Serious: Yes (Other)
  Sender: FDA-Public Use
  Company Number: EC-PFIZER INC-2009273212

PATIENT
  Age: 24 Year

DRUGS (1)
  1. DOSTINEX [Suspect]
     Indication: PITUITARY TUMOUR BENIGN
     Dosage: TOTAL WEEKLY DOSE 2MG
     Route: 048

REACTIONS (2)
  - HYPERPROLACTINAEMIA [None]
  - SKIN EXFOLIATION [None]
